FAERS Safety Report 18313516 (Version 3)
Quarter: 2021Q1

REPORT INFORMATION
  Report Type: Other
  Country: RO (occurrence: RO)
  Receive Date: 20200925
  Receipt Date: 20210202
  Transmission Date: 20210419
  Serious: Yes (Other)
  Sender: FDA-Public Use
  Company Number: RO-ROCHE-2658044

PATIENT
  Sex: Female
  Weight: 99 kg

DRUGS (4)
  1. TAMOXIFEN [Suspect]
     Active Substance: TAMOXIFEN
     Indication: BREAST CANCER
     Route: 065
  2. HERCEPTIN [Suspect]
     Active Substance: TRASTUZUMAB
     Indication: PRODUCT USED FOR UNKNOWN INDICATION
     Route: 058
  3. HERCEPTIN [Suspect]
     Active Substance: TRASTUZUMAB
     Indication: BREAST CANCER
     Route: 042
  4. ALECENSA [Suspect]
     Active Substance: ALECTINIB HYDROCHLORIDE
     Indication: LUNG NEOPLASM MALIGNANT
     Dosage: FOR 28 DAYS
     Route: 048
     Dates: start: 202101

REACTIONS (12)
  - Malaise [Unknown]
  - Bone pain [Unknown]
  - Vascular pain [Recovered/Resolved]
  - Injection site swelling [Recovered/Resolved]
  - Back pain [Unknown]
  - Confusional state [Unknown]
  - Breast cancer recurrent [Unknown]
  - Memory impairment [Unknown]
  - Neoplasm [Recovering/Resolving]
  - Metastases to central nervous system [Recovered/Resolved]
  - Tremor [Unknown]
  - Recurrent cancer [Recovering/Resolving]
